FAERS Safety Report 14751266 (Version 2)
Quarter: 2018Q2

REPORT INFORMATION
  Report Type: Spontaneous
  Country: TR (occurrence: TR)
  Receive Date: 20180412
  Receipt Date: 20180620
  Transmission Date: 20180711
  Serious: Yes (Other)
  Sender: FDA-Public Use
  Company Number: TR-LUPIN PHARMACEUTICALS INC.-2018-02848

PATIENT
  Age: 2 Month
  Sex: Female
  Weight: 5.33 kg

DRUGS (1)
  1. CLOBETASOL PROPIONATE CREAM [Suspect]
     Active Substance: CLOBETASOL PROPIONATE
     Indication: DERMATITIS DIAPER
     Dosage: UNK, TWO TO THREE TIMES A DAY
     Route: 061

REACTIONS (3)
  - Cushing^s syndrome [Recovering/Resolving]
  - Intentional product misuse [Unknown]
  - Toxicity to various agents [Unknown]
